FAERS Safety Report 5971415-5 (Version None)
Quarter: 2008Q4

REPORT INFORMATION
  Report Type: 
  Country: None (occurrence: None)
  Receive Date: 20081130
  Receipt Date: 20081121
  Transmission Date: 20090506
  Serious: Yes (Death, Life-Threatening, Hospitalization)
  Sender: FDA-Public Use
  Company Number: GB-PFIZER INC-2006045110

PATIENT
  Sex: Female
  Weight: 62 kg

DRUGS (8)
  1. SU-011,248 [Suspect]
     Indication: COLORECTAL CANCER METASTATIC
     Route: 048
     Dates: start: 20060217
  2. IRINOTECAN HYDROCHLORIDE [Suspect]
     Indication: COLORECTAL CANCER METASTATIC
     Route: 042
     Dates: start: 20060215
  3. FLUOROURACIL [Suspect]
     Indication: COLORECTAL CANCER METASTATIC
     Dosage: DAILY DOSE:4032MG
     Route: 042
     Dates: start: 20060215
  4. LEUCOVORIN CALCIUM [Suspect]
     Indication: COLORECTAL CANCER METASTATIC
     Route: 042
     Dates: start: 20060215
  5. DEXAMETHASONE [Concomitant]
     Route: 048
     Dates: start: 20060316, end: 20060319
  6. LANSOPRAZOLE [Concomitant]
     Route: 048
     Dates: start: 20060101
  7. GRANISETRON [Concomitant]
     Route: 048
     Dates: start: 20060307
  8. ORAMORPH SR [Concomitant]
     Route: 048
     Dates: start: 20060101

REACTIONS (1)
  - FEBRILE NEUTROPENIA [None]
